FAERS Safety Report 16387091 (Version 1)
Quarter: 2019Q2

REPORT INFORMATION
  Report Type: Spontaneous
  Country: US (occurrence: US)
  Receive Date: 20190604
  Receipt Date: 20190604
  Transmission Date: 20190711
  Serious: Yes (Other)
  Sender: FDA-Public Use
  Company Number: US-SA-2019SA150096

PATIENT
  Age: 89 Year
  Sex: Female

DRUGS (2)
  1. NASACORT ALLERGY 24HR [Suspect]
     Active Substance: TRIAMCINOLONE ACETONIDE
     Indication: COUGH
     Dosage: 1 SPRAY EACH NOSTRIL, QD
     Route: 045
     Dates: start: 2017
  2. ALLEGRA [Suspect]
     Active Substance: FEXOFENADINE HYDROCHLORIDE
     Indication: COUGH

REACTIONS (10)
  - Vitamin D decreased [Unknown]
  - Cold sweat [Unknown]
  - Wrist fracture [Unknown]
  - Renal disorder [Unknown]
  - Body temperature fluctuation [Unknown]
  - Cholecystectomy [Unknown]
  - Liver disorder [Unknown]
  - Unevaluable event [Unknown]
  - Fall [Unknown]
  - Discomfort [Unknown]
